FAERS Safety Report 9472469 (Version 1)
Quarter: 2013Q3

REPORT INFORMATION
  Report Type: Report from Study
  Country: GB (occurrence: GB)
  Receive Date: 20130823
  Receipt Date: 20130823
  Transmission Date: 20140515
  Serious: Yes (Other)
  Sender: FDA-Public Use
  Company Number: PHHO2013GB010716

PATIENT
  Sex: Male

DRUGS (1)
  1. DICLOFENAC [Suspect]
     Indication: OSTEOARTHRITIS
     Dosage: 50 MG, TID
     Route: 048
     Dates: start: 20110811, end: 20130520

REACTIONS (3)
  - Transient ischaemic attack [Recovered/Resolved with Sequelae]
  - Atrial fibrillation [Unknown]
  - Hypoaesthesia [Unknown]
